FAERS Safety Report 6054098-8 (Version None)
Quarter: 2009Q1

REPORT INFORMATION
  Report Type: 
  Country: None (occurrence: None)
  Receive Date: 20090127
  Receipt Date: 20090115
  Transmission Date: 20090719
  Serious: Yes (Hospitalization)
  Sender: FDA-Public Use
  Company Number: DE-PFIZER INC-2009155713

PATIENT

DRUGS (4)
  1. SOMATROPIN [Suspect]
     Indication: HYPOPITUITARISM
     Dosage: 0.2 MG, 1X/DAY
     Route: 058
     Dates: start: 20000809
  2. HYDROCORTISONE [Concomitant]
     Dosage: 20 MG, 1X/DAY
  3. NOVOTHYRAL [Concomitant]
     Dosage: 150 UG, 1X/DAY
  4. LIVIELLA [Concomitant]
     Dosage: 2.5 MG, 1X/DAY

REACTIONS (1)
  - PITUITARY TUMOUR BENIGN [None]
